FAERS Safety Report 6933055-0 (Version None)
Quarter: 2010Q3

REPORT INFORMATION
  Report Type: 
  Country: None (occurrence: None)
  Receive Date: 20100818
  Receipt Date: 20100818
  Transmission Date: 20110219
  Serious: Yes (Hospitalization)
  Sender: FDA-Public Use
  Company Number: None

PATIENT
  Age: 52 Year
  Sex: Male

DRUGS (12)
  1. LEVOFLOXACIN [Suspect]
     Indication: URINARY TRACT INFECTION
     Dosage: 750 MG DAILY ORAL
     Route: 048
     Dates: start: 20091219, end: 20091223
  2. FUROSEMIDE [Concomitant]
  3. CLONAZEPAM [Concomitant]
  4. MORPHINE [Concomitant]
  5. MEMANTINE [Concomitant]
  6. LACTULOSE [Concomitant]
  7. ESOMEPRAZOLE MAGNESIUM [Concomitant]
  8. PROMETHAZINE [Concomitant]
  9. PHENAZOPYRIDINE HCL TAB [Concomitant]
  10. RISPERIDONE [Concomitant]
  11. HYDROCODONE BITARTRATE AND ACETAMINOPHEN [Concomitant]
  12. ATENOLOL [Concomitant]

REACTIONS (2)
  - DYSPNOEA [None]
  - SWOLLEN TONGUE [None]
